FAERS Safety Report 8153983-0 (Version None)
Quarter: 2012Q1

REPORT INFORMATION
  Report Type: 
  Country: None (occurrence: None)
  Receive Date: 20120221
  Receipt Date: 20120221
  Transmission Date: 20120608
  Serious: Yes (Other)
  Sender: FDA-Public Use
  Company Number: None

PATIENT
  Sex: Male
  Weight: 98.883 kg

DRUGS (1)
  1. METOPROLOL TARTRATE [Suspect]
     Indication: CORONARY ARTERY BYPASS
     Dosage: 50.0 MG
     Dates: start: 20120120, end: 20120218

REACTIONS (4)
  - DEPRESSION [None]
  - INSOMNIA [None]
  - PERIPHERAL COLDNESS [None]
  - BLOOD GLUCOSE INCREASED [None]
